FAERS Safety Report 22743586 (Version 54)
Quarter: 2025Q3

REPORT INFORMATION
  Report Type: Spontaneous
  Country: GB (occurrence: GB)
  Receive Date: 20230724
  Receipt Date: 20250728
  Transmission Date: 20251021
  Serious: Yes (Hospitalization, Other)
  Sender: AMGEN
  Company Number: GB-002147023-NVSC2023GB152984

PATIENT
  Age: 48 Year
  Sex: Female
  Weight: 50 kg

DRUGS (23)
  1. BEVACIZUMAB [Suspect]
     Active Substance: BEVACIZUMAB
     Indication: Colorectal cancer metastatic
     Route: 040
     Dates: start: 20230405
  2. BEVACIZUMAB [Suspect]
     Active Substance: BEVACIZUMAB
     Route: 040
     Dates: start: 20230405
  3. BEVACIZUMAB [Suspect]
     Active Substance: BEVACIZUMAB
     Route: 040
     Dates: start: 20230405
  4. BEVACIZUMAB [Suspect]
     Active Substance: BEVACIZUMAB
     Route: 040
     Dates: start: 20230405
  5. OXALIPLATIN [Suspect]
     Active Substance: OXALIPLATIN
     Indication: Colorectal cancer metastatic
     Route: 040
     Dates: start: 20230405
  6. OXALIPLATIN [Suspect]
     Active Substance: OXALIPLATIN
     Route: 040
     Dates: start: 20230405
  7. OXALIPLATIN [Suspect]
     Active Substance: OXALIPLATIN
     Route: 040
     Dates: start: 20230405
  8. ZOPICLONE [Suspect]
     Active Substance: ZOPICLONE
     Indication: Insomnia
     Route: 048
     Dates: start: 20230523
  9. LEUCOVORIN [Suspect]
     Active Substance: LEUCOVORIN\LEUCOVORIN CALCIUM
     Indication: Colorectal cancer metastatic
     Route: 040
     Dates: start: 20230405
  10. LEUCOVORIN [Suspect]
     Active Substance: LEUCOVORIN\LEUCOVORIN CALCIUM
     Route: 040
     Dates: start: 20230405
  11. FLUOROURACIL [Suspect]
     Active Substance: FLUOROURACIL
     Indication: Colorectal cancer metastatic
     Route: 040
     Dates: start: 20220816, end: 20230124
  12. FLUOROURACIL [Suspect]
     Active Substance: FLUOROURACIL
     Route: 040
     Dates: start: 20230405
  13. FLUOROURACIL [Suspect]
     Active Substance: FLUOROURACIL
     Route: 040
     Dates: start: 20230405
  14. LEUCOVORIN CALCIUM [Suspect]
     Active Substance: LEUCOVORIN CALCIUM
     Indication: Colorectal cancer metastatic
     Route: 040
     Dates: start: 20230405
  15. LEUCOVORIN CALCIUM [Suspect]
     Active Substance: LEUCOVORIN CALCIUM
     Route: 040
     Dates: start: 20230405
  16. XARELTO [Concomitant]
     Active Substance: RIVAROXABAN
     Indication: Deep vein thrombosis
     Route: 065
     Dates: start: 20230608
  17. XARELTO [Concomitant]
     Active Substance: RIVAROXABAN
     Indication: Pulmonary embolism
     Dates: start: 20240608
  18. XARELTO [Concomitant]
     Active Substance: RIVAROXABAN
  19. BENZYDAMINE [Concomitant]
     Active Substance: BENZYDAMINE
     Indication: Stomatitis
     Route: 048
     Dates: start: 20230605
  20. BENZYDAMINE [Concomitant]
     Active Substance: BENZYDAMINE
     Indication: Stomatitis
     Route: 048
  21. MORPHINE SULFATE [Concomitant]
     Active Substance: MORPHINE SULFATE
     Indication: Abdominal pain lower
     Route: 065
     Dates: start: 20230502
  22. MORPHINE SULFATE [Concomitant]
     Active Substance: MORPHINE SULFATE
     Route: 065
     Dates: start: 20230502
  23. BENZYDAMINE HYDROCHLORIDE [Concomitant]
     Active Substance: BENZYDAMINE HYDROCHLORIDE
     Indication: Stomatitis

REACTIONS (2)
  - Ascites [Recovering/Resolving]
  - Colorectal cancer metastatic [Unknown]

NARRATIVE: CASE EVENT DATE: 20230630
